FAERS Safety Report 23832743 (Version 2)
Quarter: 2024Q3

REPORT INFORMATION
  Report Type: Spontaneous
  Country: US (occurrence: US)
  Receive Date: 20240508
  Receipt Date: 20240703
  Transmission Date: 20241016
  Serious: No
  Sender: SANOFI AVENTIS
  Company Number: US-SA-SAC20240430000815

PATIENT
  Age: 65 Year
  Sex: Male
  Weight: 159.21 kg

DRUGS (1)
  1. LANTUS [Suspect]
     Active Substance: INSULIN GLARGINE
     Dosage: 50 IU, BID
     Route: 065

REACTIONS (2)
  - Hypoacusis [Unknown]
  - Inappropriate schedule of product administration [Unknown]
